FAERS Safety Report 7497030-2 (Version None)
Quarter: 2011Q2

REPORT INFORMATION
  Report Type: 
  Country: None (occurrence: None)
  Receive Date: 20110523
  Receipt Date: 20110512
  Transmission Date: 20111010
  Serious: Yes (Other)
  Sender: FDA-Public Use
  Company Number: PHEH2006US14747

PATIENT
  Sex: Female

DRUGS (1)
  1. ZOMETA [Suspect]

REACTIONS (18)
  - BREAST CANCER METASTATIC [None]
  - HYPERLIPIDAEMIA [None]
  - DECREASED INTEREST [None]
  - OSTEONECROSIS OF JAW [None]
  - HYPERTENSION [None]
  - CHOLELITHIASIS [None]
  - TYPE 2 DIABETES MELLITUS [None]
  - PAIN [None]
  - RHEUMATOID ARTHRITIS [None]
  - HEPATIC LESION [None]
  - ANXIETY [None]
  - OBESITY [None]
  - LYMPHADENOPATHY [None]
  - GENERAL PHYSICAL HEALTH DETERIORATION [None]
  - OSTEOPENIA [None]
  - METASTASES TO BONE [None]
  - METASTASES TO LIVER [None]
  - RENAL CYST [None]
